FAERS Safety Report 10428566 (Version 1)
Quarter: 2014Q3

REPORT INFORMATION
  Report Type: Spontaneous
  Country: US (occurrence: US)
  Receive Date: 20140903
  Receipt Date: 20140903
  Transmission Date: 20150326
  Serious: Yes (Death, Hospitalization)
  Sender: FDA-Public Use
  Company Number: US-B.I. PHARMACEUTICALS,INC./RIDGEFIELD-2014-BI-40593BP

PATIENT
  Age: 63 Year
  Sex: Male

DRUGS (3)
  1. PRADAXA [Suspect]
     Active Substance: DABIGATRAN ETEXILATE MESYLATE
     Indication: ATRIAL FIBRILLATION
     Route: 065
     Dates: end: 20130507
  2. ETODOLAC. [Suspect]
     Active Substance: ETODOLAC
     Indication: ARTHRALGIA
  3. ETODOLAC. [Suspect]
     Active Substance: ETODOLAC
     Indication: ARTHRALGIA
     Route: 065
     Dates: end: 20130507

REACTIONS (5)
  - Shock [Unknown]
  - Urinary tract infection [Fatal]
  - Anaemia [Unknown]
  - Upper gastrointestinal haemorrhage [Recovered/Resolved]
  - Hypotension [Unknown]

NARRATIVE: CASE EVENT DATE: 20130507
